FAERS Safety Report 4312069-3 (Version None)
Quarter: 2004Q1

REPORT INFORMATION
  Report Type: 
  Country: None (occurrence: None)
  Receive Date: 20040303
  Receipt Date: 20040219
  Transmission Date: 20041129
  Serious: Yes (Hospitalization, Other)
  Sender: FDA-Public Use
  Company Number: HQWYE260423FEB04

PATIENT
  Age: 20 Year
  Sex: Male

DRUGS (2)
  1. RAPAMUNE [Suspect]
     Indication: PROPHYLAXIS AGAINST TRANSPLANT REJECTION
     Dosage: 16 MG 1X PER 1 DAY ORAL; 12 MG 1X PER 1 DAY ORAL
     Route: 048
     Dates: start: 20040125, end: 20040101
  2. RAPAMUNE [Suspect]
     Indication: PROPHYLAXIS AGAINST TRANSPLANT REJECTION
     Dosage: 16 MG 1X PER 1 DAY ORAL; 12 MG 1X PER 1 DAY ORAL
     Route: 048
     Dates: start: 20040101

REACTIONS (4)
  - BLOOD CREATININE INCREASED [None]
  - HAEMOGLOBIN DECREASED [None]
  - INTRA-ABDOMINAL HAEMORRHAGE [None]
  - PERIRENAL HAEMATOMA [None]
